FAERS Safety Report 21626006 (Version 1)
Quarter: 2022Q4

REPORT INFORMATION
  Report Type: Spontaneous
  Country: CN (occurrence: None)
  Receive Date: 20221122
  Receipt Date: 20221122
  Transmission Date: 20230112
  Serious: Yes (Other)
  Sender: FDA-Public Use
  Company Number: CN-ROCHE-3222401

PATIENT
  Age: 69 Year
  Sex: Female

DRUGS (21)
  1. TRASTUZUMAB [Suspect]
     Active Substance: TRASTUZUMAB
     Indication: Breast cancer
     Route: 065
     Dates: start: 201306, end: 201502
  2. TRASTUZUMAB [Suspect]
     Active Substance: TRASTUZUMAB
     Route: 065
     Dates: start: 201502
  3. TRASTUZUMAB [Suspect]
     Active Substance: TRASTUZUMAB
     Dosage: 8 MG/KG FOR THE FIRST TIME, THEN 6 MG/KG
     Route: 065
     Dates: start: 201805, end: 201810
  4. TRASTUZUMAB [Suspect]
     Active Substance: TRASTUZUMAB
     Dosage: 8 MG/KG FOR THE FIRST TIME, THEN 6 MG/KG
     Route: 065
     Dates: start: 201912, end: 202002
  5. ADO-TRASTUZUMAB EMTANSINE [Suspect]
     Active Substance: ADO-TRASTUZUMAB EMTANSINE
     Indication: Breast cancer
     Route: 065
     Dates: start: 202206
  6. PIRARUBICIN [Concomitant]
     Active Substance: PIRARUBICIN
     Indication: Breast cancer
     Route: 065
     Dates: start: 201306
  7. CYCLOPHOSPHAMIDE [Concomitant]
     Active Substance: CYCLOPHOSPHAMIDE
     Indication: Breast cancer
     Dates: start: 201306
  8. DOCETAXEL [Concomitant]
     Active Substance: DOCETAXEL
     Indication: Breast cancer
     Dates: start: 201306
  9. GEMCITABINE [Concomitant]
     Active Substance: GEMCITABINE
     Indication: Breast cancer
     Dates: start: 201512
  10. CARBOPLATIN [Concomitant]
     Active Substance: CARBOPLATIN
     Indication: Breast cancer
     Dates: start: 201512
  11. LAPATINIB [Concomitant]
     Active Substance: LAPATINIB
     Indication: Breast cancer
     Dates: start: 201512
  12. CAPECITABINE [Concomitant]
     Active Substance: CAPECITABINE
     Indication: Breast cancer
     Dosage: NON-ROCHE DRUGS
     Route: 065
     Dates: start: 201512
  13. CAPECITABINE [Concomitant]
     Active Substance: CAPECITABINE
     Dosage: D1-14
     Route: 048
     Dates: start: 201912, end: 202002
  14. VINORELBINE [Concomitant]
     Active Substance: VINORELBINE TARTRATE
     Indication: Breast cancer
     Dates: start: 201805, end: 201810
  15. PACLITAXEL [Concomitant]
     Active Substance: PACLITAXEL
     Indication: Breast cancer
     Dates: start: 202003
  16. PACLITAXEL [Concomitant]
     Active Substance: PACLITAXEL
     Dates: start: 202209
  17. PYROTINIB [Concomitant]
     Active Substance: PYROTINIB
     Indication: Breast cancer
     Dates: start: 202003
  18. PYROTINIB [Concomitant]
     Active Substance: PYROTINIB
  19. PYROTINIB [Concomitant]
     Active Substance: PYROTINIB
     Dosage: FOR 9 TIMES
     Dates: end: 202009
  20. PYROTINIB [Concomitant]
     Active Substance: PYROTINIB
     Dates: start: 202009, end: 202206
  21. ANASTROZOLE [Concomitant]
     Active Substance: ANASTROZOLE
     Indication: Breast cancer
     Dates: start: 202009, end: 202206

REACTIONS (4)
  - Myelosuppression [Recovering/Resolving]
  - Neutrophil count decreased [Unknown]
  - Diarrhoea [Unknown]
  - Nausea [Unknown]
